FAERS Safety Report 13135319 (Version 2)
Quarter: 2017Q1

REPORT INFORMATION
  Report Type: Report from Study
  Country: US (occurrence: US)
  Receive Date: 20170120
  Receipt Date: 20170203
  Transmission Date: 20170428
  Serious: No
  Sender: FDA-Public Use
  Company Number: US-AMGEN-USASL2017008546

PATIENT
  Sex: Female

DRUGS (1)
  1. ENBREL [Suspect]
     Active Substance: ETANERCEPT
     Indication: PSORIATIC ARTHROPATHY
     Dosage: UNK
     Route: 065
     Dates: end: 201612

REACTIONS (5)
  - Injection site recall reaction [Unknown]
  - Injection site scar [Unknown]
  - Hypersensitivity [Unknown]
  - Injection site urticaria [Unknown]
  - Injection site pruritus [Unknown]
